FAERS Safety Report 5721458-1 (Version None)
Quarter: 2008Q2

REPORT INFORMATION
  Report Type: 
  Country: None (occurrence: None)
  Receive Date: 20080428
  Receipt Date: 20080428
  Transmission Date: 20081010
  Serious: Yes (Other)
  Sender: FDA-Public Use
  Company Number: None

PATIENT
  Age: 47 Year
  Sex: Female
  Weight: 105 kg

DRUGS (1)
  1. AMINOPHYLLIN [Suspect]
     Indication: CARDIAC STRESS TEST
     Dosage: 125 MG X1  IV
     Route: 042
     Dates: start: 20080419, end: 20080419

REACTIONS (4)
  - CHEST PAIN [None]
  - CRYING [None]
  - DIZZINESS [None]
  - HEADACHE [None]
